FAERS Safety Report 24728067 (Version 1)
Quarter: 2024Q4

REPORT INFORMATION
  Report Type: Spontaneous
  Country: US (occurrence: None)
  Receive Date: 20241212
  Receipt Date: 20241212
  Transmission Date: 20250115
  Serious: Yes (Disabling)
  Sender: Public
  Company Number: None

PATIENT
  Age: 51 Year
  Sex: Female
  Weight: 81 kg

DRUGS (4)
  1. CARBOXYMETHYLCELLULOSE SODIUM EYE LUBRICANT [Suspect]
     Active Substance: CARBOXYMETHYLCELLULOSE SODIUM
     Indication: Eye irritation
     Dosage: FREQUENCY : AS NEEDED;?
     Route: 047
     Dates: start: 20200115, end: 20200115
  2. COMPRESSION SLEEVES FOR ARTHRITIS SWELLING [Concomitant]
  3. GLOVES [Concomitant]
  4. IBUPROFEN [Concomitant]
     Active Substance: IBUPROFEN

REACTIONS (4)
  - Corneal opacity [None]
  - Cataract [None]
  - Eye infection [None]
  - Blindness unilateral [None]

NARRATIVE: CASE EVENT DATE: 20200115
